FAERS Safety Report 5131685-2 (Version None)
Quarter: 2006Q4

REPORT INFORMATION
  Report Type: 
  Country: None (occurrence: None)
  Receive Date: 20061016
  Receipt Date: 20061001
  Transmission Date: 20070319
  Serious: Yes (Other)
  Sender: FDA-Public Use
  Company Number: 2006106525

PATIENT
  Age: 51 Year
  Sex: Male

DRUGS (6)
  1. ELETRIPTAN (ELETRIPTAN) [Suspect]
     Indication: MIGRAINE
     Dosage: 40 MG (40 MG, 1 IN 1 D), ORAL
     Route: 048
     Dates: start: 20060830, end: 20060830
  2. BETOLVEX (CYANOCOBALAMIN-T-ANNIN COMPLEX) [Concomitant]
  3. OLFEN (DICLOFENAC SODIUM) [Concomitant]
  4. NOVALGIN (METAMIZOLE SODIUM) [Concomitant]
  5. ULTRADOL (ETODOLAC) [Concomitant]
  6. TRAMADOL HCL [Concomitant]

REACTIONS (7)
  - CHEST PAIN [None]
  - HEADACHE [None]
  - HYPERHIDROSIS [None]
  - NAUSEA [None]
  - PHONOPHOBIA [None]
  - PHOTOPHOBIA [None]
  - SYNCOPE [None]
